FAERS Safety Report 9900697 (Version 3)
Quarter: 2014Q2

REPORT INFORMATION
  Report Type: Spontaneous
  Country: US (occurrence: US)
  Receive Date: 20140217
  Receipt Date: 20140408
  Transmission Date: 20141212
  Serious: No
  Sender: FDA-Public Use
  Company Number: US-009507513-1402USA006143

PATIENT
  Sex: Male

DRUGS (6)
  1. VICTRELIS [Suspect]
     Indication: HEPATITIS C
     Dosage: 12 CAPSULES (STRENGTH: 200MG) / DAY, T.I.D. (THREE TIMES A DAY)
     Route: 048
     Dates: start: 20131013, end: 20140324
  2. REBETOL [Suspect]
     Indication: HEPATITIS C
     Dosage: 600MG DOSE, BID (TWICE A DAY)
     Route: 048
     Dates: end: 20140324
  3. REBETOL [Suspect]
     Dosage: 400MG AM/600 MG PM, BID (TWICE A DAY)
     Route: 048
     Dates: start: 20130907
  4. PEGINTRON [Suspect]
     Indication: HEPATITIS C
     Dosage: 0.5 ML (STRENGTH: 80 MCG), ONCE A WEEK, REDIPEN
     Route: 058
     Dates: start: 20130907, end: 20140318
  5. XANAX [Concomitant]
     Dosage: 1 DF, HS
  6. TRAZODONE HYDROCHLORIDE [Concomitant]
     Dosage: 1 DF, HS

REACTIONS (11)
  - Feeling abnormal [Not Recovered/Not Resolved]
  - Insomnia [Recovered/Resolved]
  - Asthenia [Not Recovered/Not Resolved]
  - Fatigue [Unknown]
  - Injection site pain [Unknown]
  - Malaise [Unknown]
  - Alopecia [Unknown]
  - Anaemia [Not Recovered/Not Resolved]
  - Leukopenia [Not Recovered/Not Resolved]
  - Disturbance in attention [Unknown]
  - Impaired driving ability [Unknown]
